FAERS Safety Report 10089735 (Version 1)
Quarter: 2014Q2

REPORT INFORMATION
  Report Type: Spontaneous
  Country: US (occurrence: US)
  Receive Date: 20140421
  Receipt Date: 20140421
  Transmission Date: 20141212
  Serious: No
  Sender: FDA-Public Use
  Company Number: US-TEVA-476953USA

PATIENT
  Age: 21 Year
  Sex: Female
  Weight: 52.66 kg

DRUGS (1)
  1. PLAN B ONE-STEP [Suspect]
     Indication: POST COITAL CONTRACEPTION
     Dosage: 1.5 MILLIGRAM DAILY;
     Route: 048
     Dates: start: 20140318, end: 20140318

REACTIONS (3)
  - Menstruation irregular [Unknown]
  - Breast tenderness [Not Recovered/Not Resolved]
  - Dysmenorrhoea [Not Recovered/Not Resolved]
